FAERS Safety Report 4373046-X (Version None)
Quarter: 2004Q2

REPORT INFORMATION
  Report Type: 
  Country: None (occurrence: None)
  Receive Date: 20040526
  Receipt Date: 20040511
  Transmission Date: 20050107
  Serious: Yes (Death, Life-Threatening, Hospitalization)
  Sender: FDA-Public Use
  Company Number: 2004AP02166

PATIENT
  Age: 26 Month
  Sex: Female

DRUGS (2)
  1. DIPRIVAN [Suspect]
     Indication: POSTOPERATIVE ANALGESIA
     Dosage: 700 MG IVD
     Route: 041
     Dates: start: 20040412, end: 20040413
  2. DIPRIVAN [Suspect]
     Dosage: 0.8 MG/KG/HR/IVD
     Route: 041
     Dates: start: 20040412, end: 20040413

REACTIONS (10)
  - BLOOD CREATININE INCREASED [None]
  - BLOOD PRESSURE DECREASED [None]
  - BRADYCARDIA [None]
  - CARDIAC ARREST [None]
  - CIRCULATORY COLLAPSE [None]
  - EYE ROLLING [None]
  - HAEMODIALYSIS [None]
  - MYOGLOBINAEMIA [None]
  - POST PROCEDURAL COMPLICATION [None]
  - SUBARACHNOID HAEMORRHAGE [None]
